FAERS Safety Report 5140571-3 (Version None)
Quarter: 2006Q4

REPORT INFORMATION
  Report Type: 
  Country: None (occurrence: None)
  Receive Date: 20061025
  Receipt Date: 20061006
  Transmission Date: 20070319
  Serious: Yes (Hospitalization)
  Sender: FDA-Public Use
  Company Number: WAES 0607BEL00023

PATIENT
  Age: 40 Year
  Sex: Female

DRUGS (19)
  1. TAB MK-0518 [Suspect]
     Indication: ACQUIRED IMMUNODEFICIENCY SYNDROME
     Dosage: 400 MG/DAILY PO
     Route: 048
     Dates: start: 20060626, end: 20060626
  2. TAB MK-0518 [Suspect]
     Indication: ACQUIRED IMMUNODEFICIENCY SYNDROME
     Dosage: 400 MG/DAILY PO
     Route: 048
     Dates: start: 20060831, end: 20061011
  3. TAB DARUNAVIR [Suspect]
     Indication: ACQUIRED IMMUNODEFICIENCY SYNDROME
     Dosage: 1200 MG PO
     Route: 048
     Dates: start: 20060626, end: 20060726
  4. TAB DARUNAVIR [Suspect]
     Indication: ACQUIRED IMMUNODEFICIENCY SYNDROME
     Dosage: 1200 MG PO
     Route: 048
     Dates: start: 20060831, end: 20061011
  5. RITONAVIR [Suspect]
     Indication: ACQUIRED IMMUNODEFICIENCY SYNDROME
     Dosage: 200 MG PO
     Route: 048
     Dates: start: 20060115, end: 20060726
  6. RITONAVIR [Suspect]
     Indication: ACQUIRED IMMUNODEFICIENCY SYNDROME
     Dosage: 200 MG PO
     Route: 048
     Dates: start: 20060831, end: 20061011
  7. INDINIVIR SULFATE [Suspect]
     Indication: ACQUIRED IMMUNODEFICIENCY SYNDROME
     Dosage: 1600 MG PO
     Route: 048
     Dates: start: 20060626, end: 20060726
  8. INDINIVIR SULFATE [Suspect]
     Indication: ACQUIRED IMMUNODEFICIENCY SYNDROME
     Dosage: 1600 MG PO
     Route: 048
     Dates: start: 20060831, end: 20061011
  9. TAB TENOFOVIR DISOPROXIL FUMARATE [Suspect]
     Indication: ACQUIRED IMMUNODEFICIENCY SYNDROME
     Dosage: 245 MG PO
     Route: 048
     Dates: start: 20060115, end: 20060726
  10. TAB TENOFOVIR DISOPROXIL FUMARATE [Suspect]
     Indication: ACQUIRED IMMUNODEFICIENCY SYNDROME
     Dosage: 245 MG PO
     Route: 048
     Dates: start: 20060831, end: 20061011
  11. LAMIVUDINE + ZIDOVUDINE [Suspect]
     Indication: ACQUIRED IMMUNODEFICIENCY SYNDROME
     Dosage: 150-300 MG/BID PO
     Route: 048
     Dates: start: 20060626, end: 20060726
  12. LAMIVUDINE + ZIDOVUDINE [Suspect]
     Indication: ACQUIRED IMMUNODEFICIENCY SYNDROME
     Dosage: 150-300 MG/BID PO
     Route: 048
     Dates: start: 20060831, end: 20061011
  13. AMINOBENZOIC ACID (+) BIOTIN (+) CHOLINE [Concomitant]
  14. CHOLECLCIFEROL [Concomitant]
  15. CLINDAMYCIN HYDROCHLORIDE [Concomitant]
  16. FLUCONAZOLE [Concomitant]
  17. LEUCOVORIN CALCIUM [Concomitant]
  18. PANTOPRAZOLE SODIUM [Concomitant]
  19. PYRIMETHAMINE TAB [Concomitant]

REACTIONS (14)
  - ABDOMINAL PAIN UPPER [None]
  - BRONCHOPNEUMONIA [None]
  - CANDIDIASIS [None]
  - CONJUNCTIVAL HYPERAEMIA [None]
  - EYE PRURITUS [None]
  - HEPATITIS CHOLESTATIC [None]
  - HEPATOTOXICITY [None]
  - HYPERTHYROIDISM [None]
  - HYPOXIA [None]
  - IMMUNE RECONSTITUTION SYNDROME [None]
  - INFLAMMATION [None]
  - INFLUENZA [None]
  - PHARYNGOLARYNGEAL PAIN [None]
  - SUPERINFECTION [None]
